FAERS Safety Report 11049441 (Version 2)
Quarter: 2015Q2

REPORT INFORMATION
  Report Type: Spontaneous
  Country: JP (occurrence: JP)
  Receive Date: 20150420
  Receipt Date: 20150421
  Transmission Date: 20150821
  Serious: Yes (Hospitalization)
  Sender: FDA-Public Use
  Company Number: JP-009507513-1504JPN018293

PATIENT
  Age: 51 Year
  Sex: Male
  Weight: 52 kg

DRUGS (4)
  1. INSULIN DEGLUDEC [Concomitant]
     Active Substance: INSULIN DEGLUDEC
     Indication: DIABETES MELLITUS
     Dosage: 44 (UNDER 1000 UNIT), DIVIDED DOSE FREQUENCY UNKNOWN
     Route: 051
  2. INSULIN DEGLUDEC [Concomitant]
     Active Substance: INSULIN DEGLUDEC
     Dosage: 22 UNITS A DAY
     Route: 051
  3. INSULIN ASPART [Concomitant]
     Active Substance: INSULIN ASPART
     Indication: DIABETES MELLITUS
     Dosage: 56 (UNDER 1000 UNIT)
     Route: 051
  4. SITAGLIPTIN PHOSPHATE [Suspect]
     Active Substance: SITAGLIPTIN PHOSPHATE
     Indication: DIABETES MELLITUS
     Dosage: 100 MG, QD, DIVIDED DOSE FREQUENCY UNKNOWN
     Route: 048

REACTIONS (3)
  - Hypoglycaemia [Recovering/Resolving]
  - Vasodilatation [Recovering/Resolving]
  - Hepatic steatosis [Recovering/Resolving]
